FAERS Safety Report 4549786-6 (Version None)
Quarter: 2005Q1

REPORT INFORMATION
  Report Type: 
  Country: None (occurrence: None)
  Receive Date: 20050111
  Receipt Date: 20040212
  Transmission Date: 20050727
  Serious: Yes (Life-Threatening, Hospitalization)
  Sender: FDA-Public Use
  Company Number: SI-MERCK-0402HUN00009

PATIENT
  Age: 59 Year
  Sex: Female

DRUGS (7)
  1. ZOCOR [Suspect]
     Indication: HYPERLIPIDAEMIA
     Route: 048
     Dates: start: 20000401, end: 20011205
  2. ZOCOR [Suspect]
     Route: 048
     Dates: start: 20011206, end: 20040209
  3. ZOCOR [Suspect]
     Route: 048
     Dates: start: 19990801, end: 20000401
  4. INSULIN, BIPHASIC ISOPHANE [INJECTION] [Concomitant]
     Indication: DIABETES MELLITUS NON-INSULIN-DEPENDENT
     Route: 051
     Dates: start: 19980101
  5. FOSINOPRIL SODIUM [Concomitant]
     Indication: HYPERTENSION
     Route: 065
     Dates: start: 20030101
  6. OMEPRAZOLE [Concomitant]
     Indication: GASTRIC ULCER
     Route: 065
  7. CLOPIDOGREL BISULFATE [Concomitant]
     Route: 065

REACTIONS (8)
  - CARDIAC ARREST [None]
  - CARDIAC FAILURE [None]
  - MYOCARDIAL INFARCTION [None]
  - RENAL FAILURE ACUTE [None]
  - RHABDOMYOLYSIS [None]
  - RIGHT VENTRICULAR FAILURE [None]
  - SYNCOPE [None]
  - URINARY TRACT INFECTION [None]
